FAERS Safety Report 23996344 (Version 1)
Quarter: 2024Q2

REPORT INFORMATION
  Report Type: Spontaneous
  Country: SE (occurrence: SE)
  Receive Date: 20240620
  Receipt Date: 20240620
  Transmission Date: 20240716
  Serious: Yes (Disabling)
  Sender: FDA-Public Use
  Company Number: None

PATIENT
  Sex: Female
  Weight: 147 kg

DRUGS (1)
  1. FLUOXETINE HYDROCHLORIDE [Suspect]
     Active Substance: FLUOXETINE HYDROCHLORIDE
     Indication: Depression
     Dosage: 1-3 CAPSULES/DAILY
     Route: 048
     Dates: start: 20070102, end: 20240425

REACTIONS (2)
  - Weight increased [Recovered/Resolved with Sequelae]
  - Obesity [Recovered/Resolved with Sequelae]

NARRATIVE: CASE EVENT DATE: 20070102
